FAERS Safety Report 6688096-8 (Version None)
Quarter: 2010Q2

REPORT INFORMATION
  Report Type: 
  Country: None (occurrence: None)
  Receive Date: 20100412
  Receipt Date: 20100107
  Transmission Date: 20101027
  Serious: No
  Sender: FDA-Public Use
  Company Number: 1000011177

PATIENT
  Sex: Male

DRUGS (1)
  1. BYSTOLIC [Suspect]

REACTIONS (1)
  - RASH [None]
